FAERS Safety Report 7876182-6 (Version None)
Quarter: 2011Q4

REPORT INFORMATION
  Report Type: 
  Country: None (occurrence: None)
  Receive Date: 20111031
  Receipt Date: 20111025
  Transmission Date: 20120403
  Serious: Yes (Hospitalization)
  Sender: FDA-Public Use
  Company Number: IT-BAYER-2011-103877

PATIENT
  Age: 76 Year
  Sex: Female

DRUGS (7)
  1. TRIAZOLAM [Concomitant]
     Dosage: DAILY DOSE 15 GTT
  2. ASPIRIN [Suspect]
     Indication: PROPHYLAXIS
     Dosage: 100 MG, QD
     Route: 048
     Dates: start: 20100101, end: 20110915
  3. INDERAL [Concomitant]
     Dosage: DAILY DOSE 80 MG
     Route: 048
  4. EFFEXOR [Concomitant]
     Dosage: DAILY DOSE 37.5 MG
     Route: 048
  5. FLECAINIDE ACETATE [Concomitant]
     Dosage: DAILY DOSE 100 MG
  6. TAPAZOLE [Concomitant]
     Dosage: DAILY DOSE 10 MG
     Route: 048
  7. PERINDOPRIL ERBUMINE [Concomitant]
     Dosage: DAILY DOSE 8 MG
     Route: 048

REACTIONS (4)
  - SUBDURAL HAEMATOMA [None]
  - GAIT DISTURBANCE [None]
  - HEMIPARESIS [None]
  - APRAXIA [None]
